FAERS Safety Report 19148444 (Version 1)
Quarter: 2021Q2

REPORT INFORMATION
  Report Type: Report from Study
  Country: CA (occurrence: CA)
  Receive Date: 20210416
  Receipt Date: 20210416
  Transmission Date: 20210717
  Serious: Yes (Death)
  Sender: FDA-Public Use
  Company Number: CA-ASTRAZENECA-2021A303335

PATIENT
  Sex: Female

DRUGS (2)
  1. IRESSA [Concomitant]
     Active Substance: GEFITINIB
     Dosage: UNKNOWN
     Route: 065
     Dates: start: 20150915
  2. TAGRISSO [Suspect]
     Active Substance: OSIMERTINIB
     Indication: NON-SMALL CELL LUNG CANCER METASTATIC
     Dosage: UNKNOWN
     Route: 048
     Dates: start: 20170927

REACTIONS (1)
  - Death [Fatal]
